FAERS Safety Report 25208628 (Version 1)
Quarter: 2025Q2

REPORT INFORMATION
  Report Type: Spontaneous
  Country: FR (occurrence: FR)
  Receive Date: 20250417
  Receipt Date: 20250417
  Transmission Date: 20250716
  Serious: Yes (Hospitalization, Other)
  Sender: MYLAN
  Company Number: None

PATIENT
  Age: 67 Year
  Sex: Female

DRUGS (12)
  1. ATORVASTATIN [Suspect]
     Active Substance: ATORVASTATIN
     Indication: Hypercholesterolaemia
     Dosage: 80 MILLIGRAM, QD
  2. ATORVASTATIN [Suspect]
     Active Substance: ATORVASTATIN
     Dosage: 80 MILLIGRAM, QD
     Route: 048
  3. ATORVASTATIN [Suspect]
     Active Substance: ATORVASTATIN
     Dosage: 80 MILLIGRAM, QD
     Route: 048
  4. ATORVASTATIN [Suspect]
     Active Substance: ATORVASTATIN
     Dosage: 80 MILLIGRAM, QD
  5. PRALUENT [Suspect]
     Active Substance: ALIROCUMAB
     Indication: Prophylaxis
     Dosage: 1 DOSAGE FORM, MONTHLY
     Dates: start: 20241001, end: 20241106
  6. PRALUENT [Suspect]
     Active Substance: ALIROCUMAB
     Dosage: 1 DOSAGE FORM, MONTHLY
     Route: 058
     Dates: start: 20241001, end: 20241106
  7. PRALUENT [Suspect]
     Active Substance: ALIROCUMAB
     Dosage: 1 DOSAGE FORM, MONTHLY
     Route: 058
     Dates: start: 20241001, end: 20241106
  8. PRALUENT [Suspect]
     Active Substance: ALIROCUMAB
     Dosage: 1 DOSAGE FORM, MONTHLY
     Dates: start: 20241001, end: 20241106
  9. KARDEGIC [Suspect]
     Active Substance: ASPIRIN DL-LYSINE
     Indication: Prophylaxis
     Dosage: 1 DOSAGE FORM, QD (POWDER FOR ORAL SOLUTION IN SACHET)
     Dates: start: 2008
  10. KARDEGIC [Suspect]
     Active Substance: ASPIRIN DL-LYSINE
     Dosage: 1 DOSAGE FORM, QD (POWDER FOR ORAL SOLUTION IN SACHET)
     Route: 048
     Dates: start: 2008
  11. KARDEGIC [Suspect]
     Active Substance: ASPIRIN DL-LYSINE
     Dosage: 1 DOSAGE FORM, QD (POWDER FOR ORAL SOLUTION IN SACHET)
     Route: 048
     Dates: start: 2008
  12. KARDEGIC [Suspect]
     Active Substance: ASPIRIN DL-LYSINE
     Dosage: 1 DOSAGE FORM, QD (POWDER FOR ORAL SOLUTION IN SACHET)
     Dates: start: 2008

REACTIONS (2)
  - Haemoptysis [Recovered/Resolved]
  - Epistaxis [Recovered/Resolved]

NARRATIVE: CASE EVENT DATE: 20241018
